FAERS Safety Report 8923319 (Version 1)
Quarter: 2012Q4

REPORT INFORMATION
  Report Type: Spontaneous
  Country: GB (occurrence: None)
  Receive Date: 20121116
  Receipt Date: 20121116
  Transmission Date: 20130627
  Serious: Yes (Other)
  Sender: FDA-Public Use
  Company Number: AUR-APL-2012-04800

PATIENT
  Sex: Male

DRUGS (1)
  1. NAPROXEN (NAPROXEN) [Suspect]
     Indication: GOUT
     Dosage: 1000 mg (500 mg, 2 in 1 D)

REACTIONS (3)
  - Oral discomfort [None]
  - Mouth ulceration [None]
  - Toothache [None]
